FAERS Safety Report 10564007 (Version 1)
Quarter: 2014Q4

REPORT INFORMATION
  Report Type: Spontaneous
  Country: US (occurrence: US)
  Receive Date: 20141104
  Receipt Date: 20141104
  Transmission Date: 20150529
  Serious: Yes (Other)
  Sender: FDA-Public Use
  Company Number: US-ASTRAZENECA-2014SE81428

PATIENT
  Age: 61 Year
  Sex: Female
  Weight: 68.9 kg

DRUGS (14)
  1. NEXIUM [Suspect]
     Active Substance: ESOMEPRAZOLE MAGNESIUM
     Indication: ABDOMINAL DISCOMFORT
     Route: 048
     Dates: start: 2009
  2. BYSTOLIC [Concomitant]
     Active Substance: NEBIVOLOL HYDROCHLORIDE
     Indication: BLOOD PRESSURE ABNORMAL
     Route: 048
     Dates: start: 2009
  3. LIPITOR [Concomitant]
     Active Substance: ATORVASTATIN CALCIUM
     Indication: PRODUCT USED FOR UNKNOWN INDICATION
     Dosage: EVERY OTHER DAY
     Route: 048
  4. CAPRELSA [Suspect]
     Active Substance: VANDETANIB
     Indication: THYROID CANCER METASTATIC
     Route: 048
     Dates: start: 201407
  5. PERCOCET [Concomitant]
     Active Substance: ACETAMINOPHEN\OXYCODONE HYDROCHLORIDE
     Indication: PAIN
     Route: 048
  6. CYMBALTA [Concomitant]
     Active Substance: DULOXETINE HYDROCHLORIDE
     Indication: DEPRESSION
     Route: 048
     Dates: start: 2006
  7. XANAX [Concomitant]
     Active Substance: ALPRAZOLAM
     Indication: SLEEP DISORDER
     Route: 048
  8. LOSARTAN [Concomitant]
     Active Substance: LOSARTAN
     Indication: BLOOD PRESSURE ABNORMAL
     Route: 048
     Dates: start: 2009
  9. TRAZODONE [Concomitant]
     Active Substance: TRAZODONE HYDROCHLORIDE
     Indication: SLEEP DISORDER
     Route: 048
     Dates: start: 2006
  10. CAPRELSA [Suspect]
     Active Substance: VANDETANIB
     Indication: THYROID CANCER METASTATIC
     Route: 048
     Dates: start: 201304
  11. ALEVE [Concomitant]
     Active Substance: NAPROXEN SODIUM
     Indication: PAIN
     Route: 048
  12. CYMBALTA [Concomitant]
     Active Substance: DULOXETINE HYDROCHLORIDE
     Indication: PAIN
     Route: 048
     Dates: start: 2006
  13. RITALIN [Concomitant]
     Active Substance: METHYLPHENIDATE HYDROCHLORIDE
     Indication: FATIGUE
  14. CAPRELSA [Suspect]
     Active Substance: VANDETANIB
     Indication: THYROID CANCER METASTATIC
     Route: 048
     Dates: start: 201402, end: 201406

REACTIONS (25)
  - Ear pain [Not Recovered/Not Resolved]
  - Pain in jaw [Unknown]
  - Pain in extremity [Unknown]
  - Eyelid oedema [Not Recovered/Not Resolved]
  - Confusional state [Not Recovered/Not Resolved]
  - Angina pectoris [Not Recovered/Not Resolved]
  - Metastases to spine [Unknown]
  - Gait disturbance [Unknown]
  - Diarrhoea [Not Recovered/Not Resolved]
  - Metastases to liver [Unknown]
  - Memory impairment [Not Recovered/Not Resolved]
  - Cataract [Recovered/Resolved]
  - Metastases to neck [Unknown]
  - Fatigue [Unknown]
  - Malaise [Unknown]
  - Headache [Unknown]
  - Drug ineffective [Recovered/Resolved]
  - Hypoacusis [Unknown]
  - Tumour perforation [Recovered/Resolved]
  - Eye pain [Not Recovered/Not Resolved]
  - Chest pain [Not Recovered/Not Resolved]
  - Diabetes mellitus [Unknown]
  - Eye discharge [Not Recovered/Not Resolved]
  - Tachycardia [Not Recovered/Not Resolved]
  - Vision blurred [Not Recovered/Not Resolved]

NARRATIVE: CASE EVENT DATE: 2009
